FAERS Safety Report 10522915 (Version 1)
Quarter: 2014Q4

REPORT INFORMATION
  Report Type: Spontaneous
  Country: US (occurrence: None)
  Receive Date: 20141010
  Receipt Date: 20141010
  Transmission Date: 20150528
  Serious: Yes (Hospitalization)
  Sender: FDA-Public Use
  Company Number: 2014SCAL00155

PATIENT
  Age: 62 Year
  Sex: Female

DRUGS (3)
  1. LITHIUM CARBONATE (LITHIUM CARBONATE) UNKNOWN [Suspect]
     Active Substance: LITHIUM CARBONATE
     Indication: BIPOLAR DISORDER
  2. LISINOPRIL (LISINOPRIL) [Suspect]
     Active Substance: LISINOPRIL
     Indication: HYPERTENSION
  3. HYDROCHLOROTHIAZIDE. [Suspect]
     Active Substance: HYDROCHLOROTHIAZIDE
     Indication: HYPERTENSION

REACTIONS (15)
  - Restlessness [None]
  - Ataxia [None]
  - Antipsychotic drug level above therapeutic [None]
  - Musculoskeletal stiffness [None]
  - Asthenia [None]
  - Drug interaction [None]
  - Haemodialysis [None]
  - Dysstasia [None]
  - Blood creatinine increased [None]
  - Mental status changes [None]
  - Glomerular filtration rate decreased [None]
  - Lack of spontaneous speech [None]
  - Blood pressure systolic increased [None]
  - Toxicity to various agents [None]
  - Bradyphrenia [None]
